FAERS Safety Report 4712959-3 (Version None)
Quarter: 2005Q3

REPORT INFORMATION
  Report Type: 
  Country: None (occurrence: None)
  Receive Date: 20050712
  Receipt Date: 20050712
  Transmission Date: 20060218
  Serious: No
  Sender: FDA-Public Use
  Company Number: None

PATIENT
  Age: 78 Year
  Sex: Male
  Weight: 115 kg

DRUGS (11)
  1. NITROFURANTOIN [Suspect]
     Indication: PROPHYLAXIS
     Dosage: 100MG  QHS   ORAL
     Route: 048
     Dates: start: 20021122, end: 20040426
  2. NITROFURANTOIN [Suspect]
     Indication: URINARY TRACT INFECTION ENTEROCOCCAL
     Dosage: 100MG  QHS   ORAL
     Route: 048
     Dates: start: 20021122, end: 20040426
  3. METHADONE [Concomitant]
  4. OXAZEPAM [Concomitant]
  5. DOCUSATE [Concomitant]
  6. MOM [Concomitant]
  7. SIMVASTATIN [Concomitant]
  8. PRAZOSIN [Concomitant]
  9. TYLENOL [Concomitant]
  10. OMEPRAZOLE [Concomitant]
  11. HYDROCHLOROTHIAZIDE [Concomitant]

REACTIONS (2)
  - DYSPNOEA [None]
  - INTERSTITIAL LUNG DISEASE [None]
